FAERS Safety Report 15114149 (Version 48)
Quarter: 2023Q1

REPORT INFORMATION
  Report Type: Spontaneous
  Country: GB (occurrence: GB)
  Receive Date: 20180706
  Receipt Date: 20230211
  Transmission Date: 20230418
  Serious: Yes (Death, Life-Threatening, Hospitalization, Congenital Anomaly, Other)
  Sender: FDA-Public Use
  Company Number: None

PATIENT
  Age: 3 Month
  Sex: Male

DRUGS (156)
  1. EFAVIRENZ [Suspect]
     Active Substance: EFAVIRENZ
     Indication: HIV infection
     Dosage: UNK
     Route: 064
     Dates: start: 20171006
  2. EFAVIRENZ [Suspect]
     Active Substance: EFAVIRENZ
     Indication: Supplementation therapy
     Dosage: 1 DOSAGE FORM, ONCE A DAY
     Route: 064
     Dates: start: 20171006, end: 20180205
  3. EFAVIRENZ [Suspect]
     Active Substance: EFAVIRENZ
     Indication: Product used for unknown indication
     Dosage: 1 DOSAGE FORM, ONCE A DAY
     Route: 064
     Dates: start: 20180205
  4. EFAVIRENZ [Suspect]
     Active Substance: EFAVIRENZ
     Indication: Foetal exposure during pregnancy
     Dosage: 1 DOSAGE FORM, ONCE A DAY
     Route: 064
  5. EFAVIRENZ [Suspect]
     Active Substance: EFAVIRENZ
     Dosage: 1 UNK
     Route: 064
     Dates: start: 20171006
  6. EFAVIRENZ [Suspect]
     Active Substance: EFAVIRENZ
     Dosage: 1 MICROGRAM PER LITRE
     Route: 064
     Dates: start: 20171006
  7. EFAVIRENZ [Suspect]
     Active Substance: EFAVIRENZ
     Dosage: UNK
     Route: 064
     Dates: start: 20171006
  8. EMTRICITABINE\TENOFOVIR [Suspect]
     Active Substance: EMTRICITABINE\TENOFOVIR
     Indication: HIV infection
     Dosage: 1 DOSAGE FORM, ONCE A DAY
     Route: 064
  9. EMTRICITABINE\TENOFOVIR [Suspect]
     Active Substance: EMTRICITABINE\TENOFOVIR
     Indication: Supplementation therapy
     Dosage: 1 DOSAGE FORM, ONCE A DAY
     Route: 064
     Dates: start: 20171006, end: 20180205
  10. EMTRICITABINE\TENOFOVIR [Suspect]
     Active Substance: EMTRICITABINE\TENOFOVIR
     Indication: Foetal exposure during pregnancy
     Dosage: 1 DOSAGE FORM, ONCE A DAY
     Route: 064
     Dates: start: 20180205
  11. EMTRICITABINE\TENOFOVIR [Suspect]
     Active Substance: EMTRICITABINE\TENOFOVIR
     Indication: Product used for unknown indication
     Dosage: 1 DOSAGE FORM, ONCE A DAY
     Route: 064
     Dates: start: 20180205
  12. EMTRICITABINE\TENOFOVIR [Suspect]
     Active Substance: EMTRICITABINE\TENOFOVIR
     Dosage: 1 DOSAGE FORM, ONCE A DAY
     Route: 064
     Dates: start: 20171006, end: 20180205
  13. EMTRICITABINE\TENOFOVIR [Suspect]
     Active Substance: EMTRICITABINE\TENOFOVIR
     Dosage: 1 DOSAGE FORM, ONCE A DAY
     Route: 064
     Dates: start: 20171006
  14. LAMIVUDINE [Suspect]
     Active Substance: LAMIVUDINE
     Indication: Antiretroviral therapy
     Dosage: 300 MG, QD
     Route: 064
     Dates: start: 20090101, end: 20100610
  15. LAMIVUDINE [Suspect]
     Active Substance: LAMIVUDINE
     Indication: Foetal exposure during pregnancy
     Dosage: UNK
     Route: 065
  16. LAMIVUDINE [Suspect]
     Active Substance: LAMIVUDINE
     Indication: Foetal exposure during pregnancy
     Dosage: 300 MILLIGRAM, MATERNAL DOSE: UNK
     Route: 064
     Dates: start: 20100610, end: 20100610
  17. LAMIVUDINE [Suspect]
     Active Substance: LAMIVUDINE
     Indication: Product used for unknown indication
  18. METFORMIN HYDROCHLORIDE [Suspect]
     Active Substance: METFORMIN HYDROCHLORIDE
     Indication: Foetal exposure during pregnancy
     Dosage: UNK
     Route: 064
  19. METFORMIN HYDROCHLORIDE [Suspect]
     Active Substance: METFORMIN HYDROCHLORIDE
     Dosage: 400 MILLIGRAM, ONCE A DAY
     Route: 064
     Dates: start: 20090101, end: 20100610
  20. NEVIRAPINE [Suspect]
     Active Substance: NEVIRAPINE
     Indication: Antiretroviral therapy
     Dosage: 400 MG, QD
     Route: 064
     Dates: start: 20090101, end: 20100610
  21. NEVIRAPINE [Suspect]
     Active Substance: NEVIRAPINE
     Indication: Antiviral treatment
     Dosage: 400 MILLIGRAM, DAILY
     Route: 064
  22. NEVIRAPINE [Suspect]
     Active Substance: NEVIRAPINE
     Indication: Foetal exposure during pregnancy
     Dosage: UNK
     Route: 064
  23. NEVIRAPINE [Suspect]
     Active Substance: NEVIRAPINE
     Indication: Product used for unknown indication
  24. NEVIRAPINE [Suspect]
     Active Substance: NEVIRAPINE
     Indication: Foetal exposure during pregnancy
  25. TENOFOVIR DISOPROXIL [Suspect]
     Active Substance: TENOFOVIR DISOPROXIL
     Indication: HIV infection
     Dosage: UNK
     Route: 064
     Dates: start: 20100610
  26. TENOFOVIR DISOPROXIL [Suspect]
     Active Substance: TENOFOVIR DISOPROXIL
     Indication: Supplementation therapy
     Dosage: 1 DOSAGE FORM, ONCE A DAY
     Route: 064
     Dates: start: 20171006
  27. TENOFOVIR DISOPROXIL [Suspect]
     Active Substance: TENOFOVIR DISOPROXIL
     Indication: Foetal exposure during pregnancy
     Dosage: 1 DOSAGE FORM, ONCE A DAY
     Route: 064
     Dates: start: 20180205
  28. TENOFOVIR DISOPROXIL [Suspect]
     Active Substance: TENOFOVIR DISOPROXIL
     Indication: Foetal exposure during pregnancy
     Dosage: 1 DOSAGE FORM, ONCE A DAY
     Route: 064
     Dates: start: 20171006, end: 20180205
  29. TENOFOVIR DISOPROXIL [Suspect]
     Active Substance: TENOFOVIR DISOPROXIL
     Indication: Product used for unknown indication
     Dosage: 1 DOSAGE FORM, ONCE A DAY
     Route: 064
     Dates: start: 20180205
  30. TENOFOVIR DISOPROXIL [Suspect]
     Active Substance: TENOFOVIR DISOPROXIL
     Dosage: 300 MILLIGRAM, QD
     Route: 064
     Dates: start: 20100610
  31. ZIDOVUDINE [Suspect]
     Active Substance: ZIDOVUDINE
     Indication: Antiviral treatment
     Dosage: 800 MILLIGRAM, ONCE A DAY
     Route: 064
     Dates: start: 20100610
  32. ZIDOVUDINE [Suspect]
     Active Substance: ZIDOVUDINE
     Indication: Foetal exposure during pregnancy
     Dosage: 600 MILLIGRAM, ONCE A DAY
     Route: 064
     Dates: start: 20090110, end: 20100610
  33. ZIDOVUDINE [Suspect]
     Active Substance: ZIDOVUDINE
     Indication: Foetal exposure during pregnancy
     Dosage: 800 MILLIGRAM, ONCE A DAY
     Route: 064
     Dates: start: 20090110, end: 20100610
  34. ZIDOVUDINE [Suspect]
     Active Substance: ZIDOVUDINE
     Indication: Product used for unknown indication
     Dosage: 800 MILLIGRAM, QD
     Route: 064
     Dates: start: 20100610, end: 20100610
  35. ZIDOVUDINE [Suspect]
     Active Substance: ZIDOVUDINE
     Dosage: 600 MILLIGRAM, QD
     Route: 064
     Dates: start: 20090110, end: 20100610
  36. ZIDOVUDINE [Suspect]
     Active Substance: ZIDOVUDINE
     Dosage: 600 MILLIGRAM, ONCE A DAY
     Route: 064
     Dates: start: 20090110, end: 20100610
  37. ZIDOVUDINE [Suspect]
     Active Substance: ZIDOVUDINE
     Dosage: UNK, (MATERNAL DOSE: 800 MG, QD)
     Route: 064
  38. ZIDOVUDINE [Suspect]
     Active Substance: ZIDOVUDINE
     Dosage: UNK, (MATERNAL DOSE: 600 MG, QD )
     Route: 064
  39. ZIDOVUDINE [Suspect]
     Active Substance: ZIDOVUDINE
     Dosage: 600 MG, QD
     Route: 064
  40. METFORMIN [Suspect]
     Active Substance: METFORMIN HYDROCHLORIDE
     Indication: Foetal exposure during pregnancy
     Dosage: UNK, (MATERNAL DOSE: 400 MG, QD)
     Route: 064
     Dates: start: 20090101, end: 20100610
  41. METFORMIN [Suspect]
     Active Substance: METFORMIN HYDROCHLORIDE
     Indication: Product used for unknown indication
     Dosage: UNK, (MATERNAL DOSE: UNKNOWN)
     Route: 064
  42. METFORMIN [Suspect]
     Active Substance: METFORMIN HYDROCHLORIDE
     Dosage: UNK, (MATERNAL DOSE: UNKNOWN)
     Route: 064
  43. EFAVIRENZ [Suspect]
     Active Substance: EFAVIRENZ
     Indication: Foetal exposure during pregnancy
     Dosage: UNK, MATERNAL DOSE: 1 UG/LITRE
     Route: 065
  44. EFAVIRENZ [Suspect]
     Active Substance: EFAVIRENZ
     Indication: Product used for unknown indication
     Dosage: MATERNAL DOSE: 1 DOSAGE FORM, QD
     Route: 064
  45. EFAVIRENZ [Suspect]
     Active Substance: EFAVIRENZ
     Dosage: MATERNAL DOSE
     Dates: start: 20171006, end: 20180205
  46. EFAVIRENZ [Suspect]
     Active Substance: EFAVIRENZ
     Dosage: 1 DOSAGE FORM, QD
     Route: 064
  47. EFAVIRENZ [Suspect]
     Active Substance: EFAVIRENZ
     Dosage: 1 FILM-COATED TABLET, QD
     Route: 064
  48. EFAVIRENZ [Suspect]
     Active Substance: EFAVIRENZ
     Dosage: MATERNAL DOSE: 1 DOSAGE FORM, QD
     Route: 064
  49. LOPINAVIR\RITONAVIR [Suspect]
     Active Substance: LOPINAVIR\RITONAVIR
     Indication: HIV infection
     Dosage: UNK
     Route: 064
     Dates: start: 20100610
  50. LOPINAVIR\RITONAVIR [Suspect]
     Active Substance: LOPINAVIR\RITONAVIR
     Indication: Foetal exposure during pregnancy
     Dosage: MATERNAL DOSE: UNK
     Route: 064
  51. LOPINAVIR\RITONAVIR [Suspect]
     Active Substance: LOPINAVIR\RITONAVIR
     Indication: Antiviral treatment
     Dosage: MATERNAL DOSE: UNK
     Route: 064
     Dates: end: 20100610
  52. LOPINAVIR\RITONAVIR [Suspect]
     Active Substance: LOPINAVIR\RITONAVIR
     Indication: HIV infection
     Dosage: MATERNAL DOSE: UNK,QD
     Route: 064
     Dates: start: 20100610
  53. LOPINAVIR\RITONAVIR [Suspect]
     Active Substance: LOPINAVIR\RITONAVIR
     Indication: Foetal exposure during pregnancy
     Dosage: MATERNAL DOSE: UNK (PATIENT WAS NOT TAKING MEDICINE AT CONCEPTION)
     Route: 064
     Dates: start: 20100610
  54. LOPINAVIR\RITONAVIR [Suspect]
     Active Substance: LOPINAVIR\RITONAVIR
     Indication: Product used for unknown indication
     Dosage: MATERNAL DOSE: 1 DOSAGE FORM, QD
     Route: 064
     Dates: start: 20100610
  55. VITAMIN B12 [Suspect]
     Active Substance: CYANOCOBALAMIN
     Indication: Supplementation therapy
     Dosage: UNK
     Route: 064
     Dates: start: 20100610
  56. VITAMIN B12 [Suspect]
     Active Substance: CYANOCOBALAMIN
     Indication: Foetal exposure during pregnancy
     Dosage: 800 MILLIGRAM
     Route: 064
     Dates: start: 20100110, end: 20100610
  57. VITAMIN B12 [Suspect]
     Active Substance: CYANOCOBALAMIN
     Dosage: UNK (CYANOCOBALAMINE)
     Route: 064
     Dates: start: 20100610
  58. COBAMAMIDE [Suspect]
     Active Substance: COBAMAMIDE
     Indication: Supplementation therapy
     Dosage: UNK
     Route: 064
  59. COBAMAMIDE [Suspect]
     Active Substance: COBAMAMIDE
     Indication: Product used for unknown indication
     Dosage: UNK, (MATERNAL DOSE: UNK )
     Route: 065
  60. CYANOCOBALAMIN [Suspect]
     Active Substance: CYANOCOBALAMIN
     Indication: Product used for unknown indication
     Dosage: 1 DOSAGE FORM, ONCE A DAY
     Route: 064
  61. CYANOCOBALAMIN [Suspect]
     Active Substance: CYANOCOBALAMIN
     Dosage: 1 DOSAGE FORM, ONCE A DAY
     Route: 064
     Dates: start: 20100610
  62. CYANOCOBALAMIN [Suspect]
     Active Substance: CYANOCOBALAMIN
     Dosage: 1 DOSAGE FORM, ONCE A DAY
     Route: 064
     Dates: start: 20100110, end: 20100610
  63. EMTRICITABINE [Suspect]
     Active Substance: EMTRICITABINE
     Indication: HIV infection
     Dosage: 1 DOSAGE FORM, QD
     Route: 064
     Dates: start: 20171006, end: 20180205
  64. EMTRICITABINE [Suspect]
     Active Substance: EMTRICITABINE
     Indication: Supplementation therapy
     Dosage: 1 DOSAGE FORM, QD
     Route: 064
     Dates: start: 20180205
  65. EMTRICITABINE [Suspect]
     Active Substance: EMTRICITABINE
     Indication: Foetal exposure during pregnancy
     Dosage: UNK, (MATERNAL DOSE: 1 DOSAGE FORM, QD
     Route: 064
  66. EMTRICITABINE [Suspect]
     Active Substance: EMTRICITABINE
     Indication: Product used for unknown indication
     Dosage: UNK
     Route: 064
  67. EMTRICITABINE [Suspect]
     Active Substance: EMTRICITABINE
     Dosage: UNK, (MATERNAL DOSE: 1 DF)
     Route: 064
  68. EMTRICITABINE [Suspect]
     Active Substance: EMTRICITABINE
     Dosage: 1 DOSAGE FORM, QD
     Route: 064
     Dates: start: 20171006
  69. EXEMESTANE [Suspect]
     Active Substance: EXEMESTANE
     Indication: Metastases to bone
     Dosage: 25 MILLIGRAM, ONCE A DAY
     Route: 048
     Dates: start: 20150518
  70. FOLATE SODIUM [Suspect]
     Active Substance: FOLATE SODIUM
     Indication: Supplementation therapy
     Dosage: UNK
     Route: 064
  71. FOLATE SODIUM [Suspect]
     Active Substance: FOLATE SODIUM
     Indication: Foetal exposure during pregnancy
     Dosage: UNK
     Route: 064
  72. FOLATE SODIUM [Suspect]
     Active Substance: FOLATE SODIUM
     Dosage: UNK
     Route: 064
  73. FOLATE SODIUM [Suspect]
     Active Substance: FOLATE SODIUM
     Dosage: UNK
     Route: 064
  74. FOLATE SODIUM [Suspect]
     Active Substance: FOLATE SODIUM
     Dosage: UNK
     Route: 064
  75. FOLIC ACID [Suspect]
     Active Substance: FOLIC ACID
     Indication: Supplementation therapy
     Dosage: UNK
     Route: 062
  76. FOLIC ACID [Suspect]
     Active Substance: FOLIC ACID
     Indication: Foetal exposure during pregnancy
     Dosage: 1 DOSAGE FORM, ONCE A DAY (MATERNAL DOSE: 1 DF
     Route: 064
  77. FOLIC ACID [Suspect]
     Active Substance: FOLIC ACID
     Indication: Foetal exposure during pregnancy
     Dosage: UNK
     Route: 064
  78. FOLIC ACID [Suspect]
     Active Substance: FOLIC ACID
     Indication: Product used for unknown indication
     Dosage: MATERNAL DOSE: UNK
     Route: 064
  79. FOLIC ACID [Suspect]
     Active Substance: FOLIC ACID
     Dosage: (MATERNAL DOSE: 1 DF
     Route: 065
  80. FOLIC ACID [Suspect]
     Active Substance: FOLIC ACID
     Dosage: MATERNAL DOSE: UNK
     Route: 064
  81. FOLIC ACID [Suspect]
     Active Substance: FOLIC ACID
     Dosage: UNK
  82. FOLIC ACID [Suspect]
     Active Substance: FOLIC ACID
     Dosage: UNK
     Route: 064
  83. FOLIC ACID [Suspect]
     Active Substance: FOLIC ACID
     Dosage: 1 DOSAGE FORM, QD, MATERNAL DOSE
     Route: 064
  84. FOLIC ACID [Suspect]
     Active Substance: FOLIC ACID
     Dosage: UNK
     Route: 065
  85. ISENTRESS [Suspect]
     Active Substance: RALTEGRAVIR POTASSIUM
     Indication: HIV infection
     Dosage: 3200 MILLIGRAM, ONCE A DAY
     Route: 064
     Dates: start: 20100610
  86. ISENTRESS [Suspect]
     Active Substance: RALTEGRAVIR POTASSIUM
     Indication: Foetal exposure during pregnancy
     Dosage: 800 MILLIGRAM (1/4 DAYS)
     Route: 064
     Dates: start: 20100610
  87. ISENTRESS [Suspect]
     Active Substance: RALTEGRAVIR POTASSIUM
     Indication: Foetal exposure during pregnancy
     Dosage: 3200 MILLIGRAM, DAILY MATERNAL DOSE: 3200 MG
     Route: 064
     Dates: start: 20100610
  88. ISENTRESS [Suspect]
     Active Substance: RALTEGRAVIR POTASSIUM
     Indication: Product used for unknown indication
     Dosage: UNK
     Route: 065
     Dates: start: 20100610
  89. ISENTRESS [Suspect]
     Active Substance: RALTEGRAVIR POTASSIUM
     Dosage: 800 MG, Q6H
     Route: 064
  90. ISENTRESS [Suspect]
     Active Substance: RALTEGRAVIR POTASSIUM
     Dosage: 3200 MG, QD (800 MILLIGRAM, QID)
     Route: 064
  91. ISENTRESS [Suspect]
     Active Substance: RALTEGRAVIR POTASSIUM
     Dosage: UNK, (MATERNAL DOSE: 3200 MG
     Route: 064
  92. KALETRA [Suspect]
     Active Substance: LOPINAVIR\RITONAVIR
     Indication: HIV infection
     Dosage: MATERNAL DOSE: UNK
     Route: 064
     Dates: start: 20100610
  93. KALETRA [Suspect]
     Active Substance: LOPINAVIR\RITONAVIR
     Indication: Foetal exposure during pregnancy
     Dosage: UNK, (MATERNAL DOSE: UNKNOWN)
     Route: 064
  94. KALETRA [Suspect]
     Active Substance: LOPINAVIR\RITONAVIR
     Indication: Foetal exposure during pregnancy
  95. KALETRA [Suspect]
     Active Substance: LOPINAVIR\RITONAVIR
     Indication: Product used for unknown indication
  96. LABETALOL [Suspect]
     Active Substance: LABETALOL\LABETALOL HYDROCHLORIDE
     Indication: Foetal exposure during pregnancy
     Dosage: UNK
     Route: 064
  97. LABETALOL [Suspect]
     Active Substance: LABETALOL\LABETALOL HYDROCHLORIDE
     Indication: Foetal exposure during pregnancy
     Dosage: 300 MILLIGRAM
     Route: 064
     Dates: start: 20090101, end: 20100610
  98. LABETALOL [Suspect]
     Active Substance: LABETALOL\LABETALOL HYDROCHLORIDE
     Indication: Product used for unknown indication
     Dosage: UNK
     Route: 065
  99. LABETALOL [Suspect]
     Active Substance: LABETALOL\LABETALOL HYDROCHLORIDE
     Dosage: MATERNAL DOSE: 300 MG
     Route: 064
     Dates: start: 20090101, end: 20100610
  100. LABETALOL [Suspect]
     Active Substance: LABETALOL\LABETALOL HYDROCHLORIDE
     Dosage: UNK
     Route: 065
  101. LABETALOL [Suspect]
     Active Substance: LABETALOL\LABETALOL HYDROCHLORIDE
     Dosage: 300 MG, (MATERNAL DOSE: 300 MG)
     Route: 064
  102. LABETALOL [Suspect]
     Active Substance: LABETALOL\LABETALOL HYDROCHLORIDE
     Dosage: UNK
     Route: 064
  103. LOPINAVIR [Suspect]
     Active Substance: LOPINAVIR
     Indication: Antiviral treatment
     Dosage: UNK, (MATERNAL DOSE: UNK)
     Route: 064
     Dates: start: 20100610
  104. LOPINAVIR [Suspect]
     Active Substance: LOPINAVIR
     Indication: HIV infection
     Dosage: UNK, (MATERNAL DOSE: UNK)
     Route: 064
     Dates: start: 20100610, end: 20100610
  105. LOPINAVIR [Suspect]
     Active Substance: LOPINAVIR
     Indication: Foetal exposure during pregnancy
  106. LOPINAVIR [Suspect]
     Active Substance: LOPINAVIR
     Indication: Foetal exposure during pregnancy
  107. LOPINAVIR [Suspect]
     Active Substance: LOPINAVIR
     Indication: Product used for unknown indication
  108. INSULIN ASPART [Suspect]
     Active Substance: INSULIN ASPART
     Indication: Product used for unknown indication
     Dosage: UNK
     Route: 064
  109. INSULIN ASPART [Suspect]
     Active Substance: INSULIN ASPART
     Indication: Maternal exposure timing unspecified
     Dosage: UNK
     Route: 064
  110. INSULIN ASPART [Suspect]
     Active Substance: INSULIN ASPART
     Indication: Foetal exposure during pregnancy
     Dosage: UNK, (MATERNAL DOSE: UNKNOWN)
     Route: 064
  111. INSULIN ASPART [Suspect]
     Active Substance: INSULIN ASPART
     Indication: Product used for unknown indication
  112. RITONAVIR [Suspect]
     Active Substance: RITONAVIR
     Indication: Antiviral treatment
     Dosage: UNK
     Route: 064
     Dates: start: 20100610
  113. RITONAVIR [Suspect]
     Active Substance: RITONAVIR
     Indication: HIV infection
     Dosage: UNK, MATERNAL DOSE: UNK
     Route: 065
     Dates: start: 20100610
  114. RITONAVIR [Suspect]
     Active Substance: RITONAVIR
     Indication: Product used for unknown indication
     Dosage: UNK, MATERNAL DOSE: UNK
     Route: 064
  115. INSULIN ASPART [Suspect]
     Active Substance: INSULIN ASPART
     Indication: Maternal exposure timing unspecified
     Dosage: UNKNOWN
     Route: 064
  116. INSULIN ASPART [Suspect]
     Active Substance: INSULIN ASPART
     Indication: Foetal exposure during pregnancy
     Dosage: UNK, EVERY WEEK
     Route: 064
  117. INSULIN ASPART [Suspect]
     Active Substance: INSULIN ASPART
     Indication: Foetal exposure during pregnancy
     Dosage: UNK
     Route: 064
  118. EFAVIRENZ [Suspect]
     Active Substance: EFAVIRENZ
     Indication: Product used for unknown indication
     Dosage: UNK, MATERNAL DOSE: 1 UG/LITER
     Route: 064
     Dates: start: 20171006, end: 20180205
  119. EFAVIRENZ [Suspect]
     Active Substance: EFAVIRENZ
     Indication: Foetal exposure during pregnancy
     Dosage: 1 DOSAGE FORM, ONCE A DAY
     Route: 064
     Dates: start: 20171006
  120. EFAVIRENZ [Suspect]
     Active Substance: EFAVIRENZ
     Indication: HIV infection
     Dosage: 1 DOSAGE FORM, ONCE A DAY (1 DOSAGE FORM, QD, (MATERNAL DOSE: 1 DOSAGE FORM
     Route: 064
     Dates: start: 20171006, end: 20180205
  121. EFAVIRENZ [Suspect]
     Active Substance: EFAVIRENZ
     Indication: Foetal exposure during pregnancy
     Dosage: 1 DOSAGE FORM, ONCE A DAY
     Route: 064
  122. EFAVIRENZ [Suspect]
     Active Substance: EFAVIRENZ
     Dosage: UNK UNK, QD
     Route: 064
  123. EFAVIRENZ [Suspect]
     Active Substance: EFAVIRENZ
     Dosage: UNK, (MATERNAL DOSE: 1 DOSAGE FORM
     Route: 064
  124. EFAVIRENZ [Suspect]
     Active Substance: EFAVIRENZ
     Dosage: 1 DOSAGE FORM, QD, (MATERNAL DOSE: 1 DOSAGE FORM
     Route: 064
  125. EFAVIRENZ [Suspect]
     Active Substance: EFAVIRENZ
     Dosage: 1 DOSAGE FORM, QD
     Route: 064
  126. TRUVADA [Suspect]
     Active Substance: EMTRICITABINE\TENOFOVIR DISOPROXIL FUMARATE
     Indication: HIV infection
     Dosage: 1 DOSAGE FORM, QD,
     Route: 064
     Dates: start: 20171006, end: 20180205
  127. TRUVADA [Suspect]
     Active Substance: EMTRICITABINE\TENOFOVIR DISOPROXIL FUMARATE
     Indication: Foetal exposure during pregnancy
     Dosage: 1 DOSAGE FORM, ONCE A DAY
     Route: 064
     Dates: start: 20180205
  128. TRUVADA [Suspect]
     Active Substance: EMTRICITABINE\TENOFOVIR DISOPROXIL FUMARATE
     Indication: Supplementation therapy
     Dosage: 1 DOSAGE FORM, ONCE A DAY
     Route: 064
     Dates: start: 20180205
  129. TRUVADA [Suspect]
     Active Substance: EMTRICITABINE\TENOFOVIR DISOPROXIL FUMARATE
     Indication: Foetal exposure during pregnancy
     Dosage: 1 DOSAGE FORM, ONCE A DAY
     Route: 064
  130. TRUVADA [Suspect]
     Active Substance: EMTRICITABINE\TENOFOVIR DISOPROXIL FUMARATE
     Dosage: 1 DOSAGE FORM, QD (MATERNAL DOSE)
     Route: 064
  131. TRUVADA [Suspect]
     Active Substance: EMTRICITABINE\TENOFOVIR DISOPROXIL FUMARATE
     Dosage: 1 DOSAGE FORM, QD
     Route: 064
  132. HYALURONIDASE (HUMAN RECOMBINANT) [Suspect]
     Active Substance: HYALURONIDASE (HUMAN RECOMBINANT)
     Indication: Breast cancer metastatic
     Dosage: 600 MILLIGRAM (2 WEEKS)
     Route: 042
     Dates: start: 20160623
  133. HYALURONIDASE (HUMAN RECOMBINANT) [Suspect]
     Active Substance: HYALURONIDASE (HUMAN RECOMBINANT)
     Dosage: 600 MILLIGRAM (3 WEEKS)
     Route: 042
     Dates: start: 20150825, end: 20151117
  134. HYALURONIDASE (HUMAN RECOMBINANT) [Suspect]
     Active Substance: HYALURONIDASE (HUMAN RECOMBINANT)
     Dosage: 600 MILLIGRAM (3 WEEKS)
     Route: 042
     Dates: start: 20160308, end: 20160308
  135. VITAMIN B12 [Suspect]
     Active Substance: CYANOCOBALAMIN
     Indication: Foetal exposure during pregnancy
     Dosage: UNK
  136. VITAMIN B12 [Suspect]
     Active Substance: CYANOCOBALAMIN
     Dosage: UNK
     Route: 064
     Dates: start: 20100610
  137. CYANOCOBALAMIN [Suspect]
     Active Substance: CYANOCOBALAMIN
     Indication: Product used for unknown indication
     Dosage: UNK
     Dates: start: 20100610
  138. EMTRICITABINE AND TENOFOVIR DISOPROXIL FUMARATE [Suspect]
     Active Substance: EMTRICITABINE\TENOFOVIR DISOPROXIL FUMARATE
     Indication: Product used for unknown indication
     Dosage: 1 DOSAGE FORM, QD
     Route: 064
     Dates: start: 20171006, end: 20180205
  139. EMTRICITABINE AND TENOFOVIR DISOPROXIL FUMARATE [Suspect]
     Active Substance: EMTRICITABINE\TENOFOVIR DISOPROXIL FUMARATE
     Dosage: UNK,MATERNAL DOSE: UNK, UNK, QD
     Route: 065
     Dates: start: 20180205
  140. EMTRICITABINE AND TENOFOVIR DISOPROXIL FUMARATE [Suspect]
     Active Substance: EMTRICITABINE\TENOFOVIR DISOPROXIL FUMARATE
     Dosage: UNK,MATERNAL DOSE: 1 DOSAGE FORM, QD
     Route: 065
  141. EMTRICITABINE AND TENOFOVIR DISOPROXIL FUMARATE [Suspect]
     Active Substance: EMTRICITABINE\TENOFOVIR DISOPROXIL FUMARATE
     Dosage: UNK,MATERNAL DOSE: 1 DOSAGE FORM, QD (1 TABLET/CAPSULE)
     Route: 065
     Dates: start: 20171006
  142. EMTRICITABINE AND TENOFOVIR DISOPROXIL FUMARATE [Suspect]
     Active Substance: EMTRICITABINE\TENOFOVIR DISOPROXIL FUMARATE
     Dosage: UNK,MATERNAL DOSE: 1 DOSAGE FORM, QD (1 TABLET/CAPSULE)
     Route: 065
     Dates: start: 20180205, end: 20180205
  143. EMTRICITABINE AND TENOFOVIR DISOPROXIL FUMARATE [Suspect]
     Active Substance: EMTRICITABINE\TENOFOVIR DISOPROXIL FUMARATE
     Dosage: UNK,MATERNAL DOSE: UNK
     Route: 065
  144. EMTRICITABINE AND TENOFOVIR DISOPROXIL FUMARATE [Suspect]
     Active Substance: EMTRICITABINE\TENOFOVIR DISOPROXIL FUMARATE
     Dosage: UNK,MATERNAL DOSE: UNK
     Route: 065
  145. FOLATE SODIUM [Suspect]
     Active Substance: FOLATE SODIUM
     Indication: Supplementation therapy
     Dosage: UNK
  146. TENOFOVIR DISOPROXIL FUMARATE [Suspect]
     Active Substance: TENOFOVIR DISOPROXIL FUMARATE
     Indication: Foetal exposure during pregnancy
     Dosage: MATERNAL DOSE: 1 DOSAGE FORM
     Route: 064
  147. TENOFOVIR DISOPROXIL FUMARATE [Suspect]
     Active Substance: TENOFOVIR DISOPROXIL FUMARATE
     Indication: HIV infection
     Dosage: MATERNAL DOSE: 1 UG/LITRE
     Route: 064
     Dates: start: 20171006, end: 20180205
  148. TENOFOVIR DISOPROXIL FUMARATE [Suspect]
     Active Substance: TENOFOVIR DISOPROXIL FUMARATE
     Indication: Foetal exposure during pregnancy
  149. TENOFOVIR DISOPROXIL FUMARATE [Suspect]
     Active Substance: TENOFOVIR DISOPROXIL FUMARATE
     Indication: Product used for unknown indication
  150. TENOFOVIR DISOPROXIL FUMARATE [Suspect]
     Active Substance: TENOFOVIR DISOPROXIL FUMARATE
     Indication: Supplementation therapy
  151. ACETAMINOPHEN [Concomitant]
     Active Substance: ACETAMINOPHEN
     Indication: Product used for unknown indication
     Dosage: 1 GRAM, 3 TIMES A DAY
     Route: 048
  152. ACETAMINOPHEN [Concomitant]
     Active Substance: ACETAMINOPHEN
     Dosage: 4 MILLIGRAM, ONCE A DAY
     Route: 048
     Dates: start: 20160916
  153. BENZYDAMINE HYDROCHLORIDE [Concomitant]
     Active Substance: BENZYDAMINE HYDROCHLORIDE
     Indication: Product used for unknown indication
     Dosage: 125 MILLIGRAM, ONCE A DAY
     Route: 065
  154. IRON [Concomitant]
     Active Substance: IRON
     Indication: Serum ferritin decreased
     Dosage: 3 GRAM, ONCE A DAY
     Route: 042
     Dates: start: 20160918
  155. CIPROFLOXACIN [Concomitant]
     Active Substance: CIPROFLOXACIN
     Indication: Vascular device infection
     Dosage: 1000 MILLIGRAM, ONCE A DAY
     Route: 048
     Dates: start: 20151210, end: 20151215
  156. CIPROFLOXACIN [Concomitant]
     Active Substance: CIPROFLOXACIN
     Dosage: 8 MILLIGRAM
     Route: 065
     Dates: start: 20150803

REACTIONS (31)
  - Trisomy 18 [Fatal]
  - Cleft lip and palate [Fatal]
  - Hydrops foetalis [Fatal]
  - Foetal exposure during pregnancy [Fatal]
  - Ultrasound antenatal screen [Fatal]
  - Caesarean section [Fatal]
  - Aspartate aminotransferase increased [Fatal]
  - Alanine aminotransferase increased [Fatal]
  - Exposure during pregnancy [Fatal]
  - Abortion spontaneous [Fatal]
  - Hepatic cytolysis [Fatal]
  - Off label use [Fatal]
  - Maternal exposure during pregnancy [Fatal]
  - Intentional product use issue [Fatal]
  - Vascular device infection [Recovered/Resolved]
  - Sepsis [Recovered/Resolved]
  - Epistaxis [Recovered/Resolved]
  - Rash [Recovered/Resolved]
  - Device related infection [Recovered/Resolved]
  - Gingival swelling [Recovered/Resolved]
  - Diarrhoea [Recovered/Resolved]
  - Anaemia [Recovered/Resolved]
  - Lymphoedema [Recovered/Resolved]
  - Influenza like illness [Recovered/Resolved]
  - Fatigue [Recovered/Resolved]
  - Gastrooesophageal reflux disease [Recovered/Resolved]
  - Alopecia [Recovered/Resolved]
  - Mucosal inflammation [Recovered/Resolved]
  - Osteonecrosis of jaw [Not Recovered/Not Resolved]
  - Hot flush [Unknown]
  - Ejection fraction decreased [Recovered/Resolved]

NARRATIVE: CASE EVENT DATE: 20100629
